FAERS Safety Report 17377168 (Version 17)
Quarter: 2024Q1

REPORT INFORMATION
  Report Type: Report from Study
  Country: CO (occurrence: CO)
  Receive Date: 20200206
  Receipt Date: 20240125
  Transmission Date: 20240410
  Serious: Yes (Life-Threatening, Hospitalization, Other)
  Sender: FDA-Public Use
  Company Number: NVSC2020CO015658

PATIENT
  Sex: Male
  Weight: 80 kg

DRUGS (20)
  1. COSENTYX [Suspect]
     Active Substance: SECUKINUMAB
     Indication: Psoriatic arthropathy
     Dosage: 300 MG, QMO
     Route: 058
     Dates: start: 20190924
  2. COSENTYX [Suspect]
     Active Substance: SECUKINUMAB
     Indication: Psoriasis
     Dosage: 150 MG, QMO (START DATE WAS 18 MONTHS AGO)
     Route: 058
  3. COSENTYX [Suspect]
     Active Substance: SECUKINUMAB
     Dosage: 150 MG, QMO
     Route: 058
     Dates: start: 20210825
  4. COSENTYX [Suspect]
     Active Substance: SECUKINUMAB
     Dosage: 150 MG, QMO
     Route: 058
  5. COSENTYX [Suspect]
     Active Substance: SECUKINUMAB
     Dosage: 300 MG, QMO
     Route: 058
  6. COSENTYX [Suspect]
     Active Substance: SECUKINUMAB
     Dosage: 300 MG, QMO (TOOK ON 10 MAR)
     Route: 058
  7. COSENTYX [Suspect]
     Active Substance: SECUKINUMAB
     Dosage: 300 MG, QMO (TOOK ON 08 AUG)
     Route: 058
  8. COSENTYX [Suspect]
     Active Substance: SECUKINUMAB
     Dosage: 300 MG, QMO
     Route: 058
     Dates: start: 20231222
  9. METOPROLOL [Suspect]
     Active Substance: METOPROLOL
     Indication: Hypertension
     Dosage: 50 MG, QD
     Route: 048
  10. ATORVASTATIN [Suspect]
     Active Substance: ATORVASTATIN
     Indication: Hypertension
     Dosage: 40 MG, QD
     Route: 048
     Dates: start: 2014
  11. ATORVASTATIN [Suspect]
     Active Substance: ATORVASTATIN
     Indication: Cardiovascular disorder
  12. LOSARTAN [Suspect]
     Active Substance: LOSARTAN
     Indication: Hypertension
     Dosage: 100 MG, QD (START DATE WAS 2 YEARS AGO)
     Route: 048
  13. METOPROLOL [Suspect]
     Active Substance: METOPROLOL
     Indication: Hypertension
     Dosage: 50 MG, QD (START DATE WAS 12 YEARS AGO)
     Route: 048
  14. ESCITALOPRAM [Suspect]
     Active Substance: ESCITALOPRAM OXALATE
     Indication: Anxiety
     Dosage: 10 MG, QD
     Route: 048
     Dates: start: 2014
  15. ESCITALOPRAM [Suspect]
     Active Substance: ESCITALOPRAM OXALATE
     Indication: Depression
     Dosage: UNK
     Route: 065
     Dates: start: 2020
  16. AMLODIPINE BESYLATE [Suspect]
     Active Substance: AMLODIPINE BESYLATE
     Indication: Hypertension
     Dosage: 10 MG, QD
     Route: 048
  17. HYDROCHLOROTHIAZIDE\LOSARTAN [Concomitant]
     Active Substance: HYDROCHLOROTHIAZIDE\LOSARTAN
     Indication: Hypertension
     Dosage: 100 MG, QD
     Route: 065
  18. ASPIRIN [Concomitant]
     Active Substance: ASPIRIN
     Indication: Hypertension
     Dosage: 100 MG, QD
     Route: 065
  19. ASPIRIN [Concomitant]
     Active Substance: ASPIRIN
     Dosage: UNK (10 YEARS AGO)
     Route: 048
  20. LEVAMLODIPINE [Concomitant]
     Active Substance: LEVAMLODIPINE
     Indication: Hypertension
     Dosage: 50 MG, QD (START DATE WAS 2 YEARS AGO)
     Route: 048

REACTIONS (35)
  - Suicide attempt [Unknown]
  - Stress [Not Recovered/Not Resolved]
  - Acute myocardial infarction [Unknown]
  - Influenza [Unknown]
  - Nasal congestion [Unknown]
  - Cough [Unknown]
  - Influenza [Recovered/Resolved]
  - Secretion discharge [Unknown]
  - Intervertebral disc degeneration [Unknown]
  - Neck pain [Unknown]
  - Pain in extremity [Not Recovered/Not Resolved]
  - Hypoaesthesia [Not Recovered/Not Resolved]
  - Arthritis [Not Recovered/Not Resolved]
  - Limb discomfort [Not Recovered/Not Resolved]
  - Arthralgia [Unknown]
  - Anxiety [Not Recovered/Not Resolved]
  - Depression [Unknown]
  - Pain [Not Recovered/Not Resolved]
  - Skin plaque [Unknown]
  - Skin exfoliation [Unknown]
  - Insomnia [Not Recovered/Not Resolved]
  - Rhinitis allergic [Unknown]
  - Spinal pain [Unknown]
  - Gait disturbance [Unknown]
  - Psoriasis [Unknown]
  - Pigmentation disorder [Unknown]
  - Rash [Unknown]
  - Dysphonia [Not Recovered/Not Resolved]
  - Diarrhoea [Unknown]
  - Abscess limb [Unknown]
  - Rhinitis [Unknown]
  - Muscle rigidity [Unknown]
  - Blood pressure decreased [Unknown]
  - Inappropriate schedule of product administration [Unknown]
  - Therapeutic product effect incomplete [Unknown]

NARRATIVE: CASE EVENT DATE: 20190101
